FAERS Safety Report 4263435-6 (Version None)
Quarter: 2004Q1

REPORT INFORMATION
  Report Type: 
  Country: None (occurrence: None)
  Receive Date: 20040104
  Receipt Date: 20040104
  Transmission Date: 20041129
  Serious: Yes (Hospitalization, Disabling)
  Sender: FDA-Public Use
  Company Number: None

PATIENT
  Sex: Male
  Weight: 95.2554 kg

DRUGS (2)
  1. TOPAMAX [Suspect]
     Indication: MIGRAINE
     Dosage: 100 MGS TWICE DAIL ORAL
     Route: 048
     Dates: start: 20020115, end: 20020118
  2. TOPAMAX [Suspect]
     Indication: PAIN
     Dosage: 100 MGS TWICE DAIL ORAL
     Route: 048
     Dates: start: 20020115, end: 20020118

REACTIONS (27)
  - ABASIA [None]
  - ADRENAL DISORDER [None]
  - AMMONIA INCREASED [None]
  - AMNESIA [None]
  - BALANCE DISORDER [None]
  - BLEPHAROSPASM [None]
  - BLOOD PRESSURE INCREASED [None]
  - COMMUNICATION DISORDER [None]
  - DEAFNESS [None]
  - DEHYDRATION [None]
  - DIFFICULTY IN WALKING [None]
  - DISTURBANCE IN ATTENTION [None]
  - DIZZINESS [None]
  - DYSKINESIA [None]
  - EYELID FUNCTION DISORDER [None]
  - FATIGUE [None]
  - GENERAL PHYSICAL HEALTH DETERIORATION [None]
  - HALLUCINATION [None]
  - HEART RATE INCREASED [None]
  - HEMIPARESIS [None]
  - HYPOTHALAMO-PITUITARY DISORDERS [None]
  - MEDICATION ERROR [None]
  - POLLAKIURIA [None]
  - SOMNOLENCE [None]
  - SPEECH DISORDER [None]
  - TREMOR [None]
  - URINARY TRACT DISORDER [None]
